FAERS Safety Report 9344200 (Version 2)
Quarter: 2013Q3

REPORT INFORMATION
  Report Type: Spontaneous
  Country: US (occurrence: US)
  Receive Date: 20130612
  Receipt Date: 20130730
  Transmission Date: 20140515
  Serious: Yes (Hospitalization, Other)
  Sender: FDA-Public Use
  Company Number: US-UCBSA-087698

PATIENT
  Age: 38 Year
  Sex: Male
  Weight: 141 kg

DRUGS (4)
  1. KEPPRA XR [Suspect]
     Indication: CONVULSION
     Dates: end: 2013
  2. KEPPRA XR [Suspect]
     Indication: CONVULSION
     Dates: start: 2013
  3. TEGRETOL [Concomitant]
     Indication: CONVULSION
  4. METOPROLOL [Concomitant]
     Indication: BLOOD PRESSURE
     Dosage: 50 MG

REACTIONS (5)
  - Convulsion [Recovered/Resolved]
  - Acute respiratory failure [Unknown]
  - Fall [Not Recovered/Not Resolved]
  - Atelectasis [Unknown]
  - Inappropriate schedule of drug administration [Unknown]
